FAERS Safety Report 14168564 (Version 1)
Quarter: 2017Q4

REPORT INFORMATION
  Report Type: Spontaneous
  Country: US (occurrence: US)
  Receive Date: 20171107
  Receipt Date: 20171107
  Transmission Date: 20180321
  Serious: No
  Sender: FDA-Public Use
  Company Number: US-SA-2017SA181956

PATIENT
  Sex: Male

DRUGS (2)
  1. TOUJEO [Suspect]
     Active Substance: INSULIN GLARGINE
     Dosage: DOSE- 40 U AM AND 80 U PM
     Route: 051
     Dates: start: 201702
  2. SOLOSTAR [Suspect]
     Active Substance: DEVICE
     Dates: start: 201702

REACTIONS (1)
  - Product use issue [Unknown]
